FAERS Safety Report 5554327-0 (Version None)
Quarter: 2007Q4

REPORT INFORMATION
  Report Type: 
  Country: None (occurrence: None)
  Receive Date: 20071213
  Receipt Date: 20071128
  Transmission Date: 20080405
  Serious: Yes (Hospitalization)
  Sender: FDA-Public Use
  Company Number: GB-BAYER-GB-2007-036665

PATIENT
  Age: 59 Year
  Sex: Female

DRUGS (14)
  1. BETASERON [Suspect]
     Dosage: UNIT DOSE: 8 MIU
     Route: 058
     Dates: start: 20070730
  2. LEVOTHYROXINE SODIUM [Concomitant]
     Dosage: UNIT DOSE: 150 ?G
     Route: 048
  3. PREGABALIN [Concomitant]
     Dosage: UNIT DOSE: 300 MG
     Route: 048
  4. PARACETAMOL [Concomitant]
     Dosage: UNIT DOSE: 1 G
     Route: 048
  5. LANSOPRAZOLE [Concomitant]
     Dosage: UNIT DOSE: 30 MG
     Route: 048
     Dates: start: 20070830
  6. GAVISCON [Concomitant]
     Route: 048
     Dates: start: 20070830
  7. RAMIPRIL [Concomitant]
     Dosage: UNIT DOSE: 1.25 MG
     Route: 048
     Dates: start: 20070903
  8. CLOPIDOGREL [Concomitant]
     Dosage: UNIT DOSE: 75 MG
     Route: 048
     Dates: start: 20070903
  9. ASPIRIN [Concomitant]
     Dosage: UNIT DOSE: 75 MG
     Route: 048
     Dates: start: 20070903
  10. OXYNORM [Concomitant]
     Dosage: UNIT DOSE: 20 MG
     Route: 048
  11. OXYNORM [Concomitant]
     Dosage: UNIT DOSE: 40 MG
     Route: 048
  12. DESLORATADINE [Concomitant]
     Dosage: UNIT DOSE: 5 MG
  13. ALBUTEROL [Concomitant]
     Dosage: UNIT DOSE: 100 MG
     Route: 055
     Dates: start: 20070903
  14. PROCHLORPERAZINE [Concomitant]
     Dosage: UNIT DOSE: 5 MG

REACTIONS (4)
  - ANGINA PECTORIS [None]
  - HEADACHE [None]
  - INFLUENZA LIKE ILLNESS [None]
  - POST PROCEDURAL COMPLICATION [None]
